FAERS Safety Report 14067162 (Version 1)
Quarter: 2017Q4

REPORT INFORMATION
  Report Type: Spontaneous
  Country: US (occurrence: US)
  Receive Date: 20171010
  Receipt Date: 20171010
  Transmission Date: 20180321
  Serious: Yes (Other)
  Sender: FDA-Public Use
  Company Number: US-TEVA-804367ACC

PATIENT
  Sex: Female

DRUGS (14)
  1. VALSARTAN. [Suspect]
     Active Substance: VALSARTAN
  2. METOPROLOL. [Concomitant]
     Active Substance: METOPROLOL
  3. JAKAFI [Suspect]
     Active Substance: RUXOLITINIB
     Dosage: 10 MILLIGRAM DAILY;
     Route: 048
     Dates: start: 2017, end: 201708
  4. CLOPIDOGREL [Concomitant]
     Active Substance: CLOPIDOGREL BISULFATE
  5. TRAZODONE [Concomitant]
     Active Substance: TRAZODONE HYDROCHLORIDE
  6. VALSARTAN. [Suspect]
     Active Substance: VALSARTAN
     Indication: PRODUCT USED FOR UNKNOWN INDICATION
     Dosage: 80 MG DECREASED TO 40 MG
  7. LEVOTHYROXINE. [Concomitant]
     Active Substance: LEVOTHYROXINE
  8. BUPROPION. [Concomitant]
     Active Substance: BUPROPION
  9. JAKAFI [Suspect]
     Active Substance: RUXOLITINIB
     Dosage: 30 MILLIGRAM DAILY;
     Route: 048
     Dates: start: 20170815
  10. ASPIRIN. [Concomitant]
     Active Substance: ASPIRIN
  11. JAKAFI [Suspect]
     Active Substance: RUXOLITINIB
     Indication: POLYCYTHAEMIA VERA
     Dosage: 20 MILLIGRAM DAILY;
     Route: 048
  12. JAKAFI [Suspect]
     Active Substance: RUXOLITINIB
     Dosage: 20 MILLIGRAM DAILY;
     Route: 048
     Dates: start: 201708, end: 201708
  13. VITAMIN D3 [Concomitant]
     Active Substance: CHOLECALCIFEROL
  14. VITAMIN D [Concomitant]
     Active Substance: CHOLECALCIFEROL

REACTIONS (10)
  - Haemoglobin decreased [Unknown]
  - Bacterial infection [Unknown]
  - Haematocrit decreased [Unknown]
  - Platelet count increased [Unknown]
  - Blood potassium increased [Unknown]
  - Hypotension [Unknown]
  - White blood cell count increased [Unknown]
  - Red blood cell count increased [Recovered/Resolved]
  - Diarrhoea [Unknown]
  - Renal impairment [Unknown]
